FAERS Safety Report 4295164-7 (Version None)
Quarter: 2004Q1

REPORT INFORMATION
  Report Type: 
  Country: None (occurrence: None)
  Receive Date: 20040216
  Receipt Date: 20040202
  Transmission Date: 20041129
  Serious: Yes (Life-Threatening, Hospitalization)
  Sender: FDA-Public Use
  Company Number: PHBS2004JP01678

PATIENT
  Age: 62 Year
  Sex: Male

DRUGS (1)
  1. LAMISIL [Suspect]
     Indication: NAIL TINEA
     Dosage: 125 MG/D
     Route: 048
     Dates: start: 20030530, end: 20030728

REACTIONS (3)
  - CIRCULATORY COLLAPSE [None]
  - EYE REDNESS [None]
  - MULTI-ORGAN FAILURE [None]
